FAERS Safety Report 9815482 (Version 1)
Quarter: 2014Q1

REPORT INFORMATION
  Report Type: Spontaneous
  Country: US (occurrence: US)
  Receive Date: 20140114
  Receipt Date: 20140114
  Transmission Date: 20141002
  Serious: Yes (Other)
  Sender: FDA-Public Use
  Company Number: US-PFIZER INC-2014008679

PATIENT
  Age: 72 Year
  Sex: Female

DRUGS (3)
  1. XELJANZ [Suspect]
     Dosage: 5 MG, 2X/DAY
     Route: 048
     Dates: start: 201306, end: 20131231
  2. XELJANZ [Suspect]
     Dosage: UNK
     Dates: start: 201306
  3. COUMADIN [Concomitant]
     Dosage: UNK

REACTIONS (8)
  - Clostridium difficile infection [Unknown]
  - Infection [Unknown]
  - Abdominal pain [Unknown]
  - Pain in extremity [Unknown]
  - Rhinorrhoea [Unknown]
  - Drug ineffective [Unknown]
  - Oral infection [Unknown]
  - Localised infection [Unknown]
